FAERS Safety Report 16694545 (Version 9)
Quarter: 2020Q2

REPORT INFORMATION
  Report Type: Spontaneous
  Country: US (occurrence: US)
  Receive Date: 20190812
  Receipt Date: 20200605
  Transmission Date: 20200713
  Serious: Yes (Other)
  Sender: FDA-Public Use
  Company Number: US-PFIZER INC-2019345235

PATIENT
  Age: 55 Year
  Sex: Female
  Weight: 85.28 kg

DRUGS (2)
  1. RELPAX [Suspect]
     Active Substance: ELETRIPTAN HYDROBROMIDE
     Indication: MIGRAINE
     Dosage: 40 MG, 2X/DAY OR 2 TABLETS (80 MG) A DAY AS NEEDED
     Route: 048
     Dates: start: 2015
  2. RELPAX [Suspect]
     Active Substance: ELETRIPTAN HYDROBROMIDE
     Dosage: 40 MG (TWO PILLS THE FIRST AND SECOND DAY, AFTER SECOND DAY TAKES ONE)

REACTIONS (5)
  - Malaise [Unknown]
  - Malignant melanoma [Unknown]
  - Weight fluctuation [Unknown]
  - Therapeutic product effect incomplete [Unknown]
  - Loss of personal independence in daily activities [Not Recovered/Not Resolved]

NARRATIVE: CASE EVENT DATE: 201911
